FAERS Safety Report 8148497-8 (Version None)
Quarter: 2012Q1

REPORT INFORMATION
  Report Type: 
  Country: None (occurrence: None)
  Receive Date: 20120218
  Receipt Date: 20110609
  Transmission Date: 20120608
  Serious: No
  Sender: FDA-Public Use
  Company Number: US-ALLERGAN-1107867US

PATIENT
  Age: 35 Year
  Sex: Female

DRUGS (2)
  1. BOTULINUM TOXIN TYPE A [Suspect]
     Indication: MIGRAINE
     Dosage: 160 UNITS, SINGLE
     Route: 030
     Dates: start: 20110401, end: 20110401
  2. BOTULINUM TOXIN TYPE A [Suspect]
     Dosage: 35 UNITS, SINGLE

REACTIONS (3)
  - DYSPHAGIA [None]
  - ASTHENIA [None]
  - THERAPEUTIC RESPONSE DECREASED [None]
